FAERS Safety Report 17851533 (Version 1)
Quarter: 2020Q2

REPORT INFORMATION
  Report Type: Spontaneous
  Country: US (occurrence: US)
  Receive Date: 20200602
  Receipt Date: 20200602
  Transmission Date: 20200714
  Serious: No
  Sender: FDA-Public Use
  Company Number: US-JNJFOC-20200521902

PATIENT

DRUGS (10)
  1. NEOSPORIN [Suspect]
     Active Substance: BACITRACIN ZINC\NEOMYCIN SULFATE\POLYMYXIN B SULFATE
     Indication: APPLICATION SITE RASH
  2. MOTRIN [Suspect]
     Active Substance: IBUPROFEN
     Indication: APPLICATION SITE SWELLING
     Route: 065
  3. NEUTROGENA                         /00021201/ [Concomitant]
     Active Substance: SALICYLIC ACID
     Indication: DRY SKIN
     Route: 061
     Dates: start: 20200508
  4. NEOSPORIN [Suspect]
     Active Substance: BACITRACIN ZINC\NEOMYCIN SULFATE\POLYMYXIN B SULFATE
     Indication: APPLICATION SITE SWELLING
     Route: 065
  5. MOTRIN [Suspect]
     Active Substance: IBUPROFEN
     Indication: APPLICATION SITE PAIN
  6. ALOE                               /01332701/ [Concomitant]
     Active Substance: ALOE
     Indication: APPLICATION SITE RASH
  7. ALOE                               /01332701/ [Concomitant]
     Active Substance: ALOE
     Indication: APPLICATION SITE PAIN
  8. NEOSPORIN [Suspect]
     Active Substance: BACITRACIN ZINC\NEOMYCIN SULFATE\POLYMYXIN B SULFATE
     Indication: APPLICATION SITE PAIN
  9. MOTRIN [Suspect]
     Active Substance: IBUPROFEN
     Indication: APPLICATION SITE RASH
  10. ALOE                               /01332701/ [Concomitant]
     Active Substance: ALOE
     Indication: APPLICATION SITE SWELLING
     Route: 065

REACTIONS (2)
  - Therapeutic response unexpected [Unknown]
  - Product use in unapproved indication [Unknown]
